FAERS Safety Report 6161889-1 (Version None)
Quarter: 2009Q2

REPORT INFORMATION
  Report Type: 
  Country: None (occurrence: None)
  Receive Date: 20090421
  Receipt Date: 20090410
  Transmission Date: 20091009
  Serious: Yes (Hospitalization)
  Sender: FDA-Public Use
  Company Number: B0569496A

PATIENT
  Sex: Female

DRUGS (5)
  1. ZIAGEN [Suspect]
     Route: 048
     Dates: start: 20081201, end: 20090303
  2. PREZISTA [Suspect]
     Dosage: 600MG TWICE PER DAY
     Route: 048
     Dates: start: 20081201, end: 20090303
  3. NORVIR [Concomitant]
     Indication: HIV INFECTION
     Route: 048
     Dates: start: 20081201
  4. ISENTRESS [Concomitant]
     Indication: HIV INFECTION
     Route: 048
     Dates: start: 20081201
  5. VIREAD [Concomitant]
     Indication: HIV INFECTION
     Route: 048

REACTIONS (1)
  - HEPATOCELLULAR INJURY [None]
